FAERS Safety Report 22921492 (Version 2)
Quarter: 2024Q3

REPORT INFORMATION
  Report Type: Spontaneous
  Country: US (occurrence: None)
  Receive Date: 20230908
  Receipt Date: 20240906
  Transmission Date: 20241017
  Serious: No
  Sender: DOMPE FARMACEUTICI
  Company Number: US-FARMAPROD-202307-1996

PATIENT
  Age: 72 Year
  Sex: Female

DRUGS (15)
  1. OXERVATE [Suspect]
     Active Substance: CENEGERMIN-BKBJ
     Indication: Neurotrophic keratopathy
     Route: 047
     Dates: start: 20230630
  2. OXERVATE [Suspect]
     Active Substance: CENEGERMIN-BKBJ
  3. BOTOX [Concomitant]
     Active Substance: ONABOTULINUMTOXINA
  4. CARBOXYMETHYLCELLULOSE SODIUM [Concomitant]
     Active Substance: CARBOXYMETHYLCELLULOSE SODIUM
  5. ASPIRIN [Concomitant]
     Active Substance: ASPIRIN
  6. METOPROLOL SUCCINATE [Concomitant]
     Active Substance: METOPROLOL SUCCINATE
  7. OMEPRAZOLE [Concomitant]
     Active Substance: OMEPRAZOLE
  8. PROGESTERONE [Concomitant]
     Active Substance: PROGESTERONE
  9. ZOLMITRIPTAN [Concomitant]
     Active Substance: ZOLMITRIPTAN
  10. FLUOROMETHOLONE [Concomitant]
     Active Substance: FLUOROMETHOLONE
  11. LEVO-T [Concomitant]
     Active Substance: LEVOTHYROXINE SODIUM
  12. SPIRONOLACTONE [Concomitant]
     Active Substance: SPIRONOLACTONE
  13. ESTRADIOL [Concomitant]
     Active Substance: ESTRADIOL
  14. ESTRADIOL-NORETHINDRONE ACETAT [Concomitant]
  15. EMGALITY [Concomitant]
     Active Substance: GALCANEZUMAB-GNLM
     Dosage: PEN INJECTOR

REACTIONS (4)
  - Eye pain [Recovering/Resolving]
  - Periorbital pain [Unknown]
  - Dry eye [Not Recovered/Not Resolved]
  - Product dose omission issue [Unknown]

NARRATIVE: CASE EVENT DATE: 20230822
